FAERS Safety Report 7514462-4 (Version None)
Quarter: 2011Q2

REPORT INFORMATION
  Report Type: 
  Country: None (occurrence: None)
  Receive Date: 20110601
  Receipt Date: 20110520
  Transmission Date: 20111010
  Serious: Yes (Other)
  Sender: FDA-Public Use
  Company Number: HK-JNJFOC-20110402653

PATIENT
  Sex: Male

DRUGS (2)
  1. NIZORAL [Suspect]
     Indication: DANDRUFF
     Route: 061
     Dates: start: 20110301, end: 20110330
  2. NIZORAL [Suspect]
     Indication: ANTIFUNGAL PROPHYLAXIS
     Route: 061
     Dates: start: 20110301, end: 20110330

REACTIONS (4)
  - PRODUCT COUNTERFEIT [None]
  - PRURITUS [None]
  - DRUG INEFFECTIVE [None]
  - PRODUCT ODOUR ABNORMAL [None]
